FAERS Safety Report 18355977 (Version 1)
Quarter: 2020Q4

REPORT INFORMATION
  Report Type: Spontaneous
  Country: US (occurrence: US)
  Receive Date: 20201007
  Receipt Date: 20201007
  Transmission Date: 20210114
  Serious: No
  Sender: FDA-Public Use
  Company Number: NVSC2020US267186

PATIENT
  Sex: Male

DRUGS (2)
  1. DUREZOL [Suspect]
     Active Substance: DIFLUPREDNATE
     Dosage: UNK 6X DAY
     Route: 065
  2. DUREZOL [Suspect]
     Active Substance: DIFLUPREDNATE
     Indication: IRIDOCYCLITIS
     Dosage: UNK UNK, QID
     Route: 065

REACTIONS (1)
  - Drug ineffective [Unknown]
